FAERS Safety Report 20148478 (Version 1)
Quarter: 2021Q4

REPORT INFORMATION
  Report Type: Spontaneous
  Country: FR (occurrence: FR)
  Receive Date: 20211204
  Receipt Date: 20211204
  Transmission Date: 20220304
  Serious: Yes (Hospitalization, Other)
  Sender: FDA-Public Use
  Company Number: FR-AFSSAPS-TO20218785

PATIENT
  Age: 59 Year
  Sex: Female
  Weight: 60 kg

DRUGS (4)
  1. ESOMEPRAZOLE [Suspect]
     Active Substance: ESOMEPRAZOLE
     Indication: Product used for unknown indication
     Dosage: UNK (40 MG IN THE EVENING)
     Route: 048
     Dates: start: 20200101
  2. FUROSEMIDE [Suspect]
     Active Substance: FUROSEMIDE
     Indication: Product used for unknown indication
     Dosage: UNK (40MG 1 / MORNING, 40MG 1 / MIDDAY)
     Route: 048
     Dates: start: 202106
  3. ZYPREXA [Suspect]
     Active Substance: OLANZAPINE
     Indication: Antipsychotic therapy
     Dosage: UNK (15 MG IN THE EVENING)
     Route: 048
     Dates: start: 20170816
  4. AMITRIPTYLINE HYDROCHLORIDE [Suspect]
     Active Substance: AMITRIPTYLINE HYDROCHLORIDE
     Indication: Antidepressant therapy
     Dosage: UNK (25MG 1 / MORNING, 25 MG 1 / EVENING)
     Route: 048
     Dates: start: 20170816

REACTIONS (2)
  - Inappropriate antidiuretic hormone secretion [Recovered/Resolved]
  - Hyponatraemia [Recovered/Resolved]

NARRATIVE: CASE EVENT DATE: 20211002
